FAERS Safety Report 15852162 (Version 1)
Quarter: 2019Q1

REPORT INFORMATION
  Report Type: Spontaneous
  Country: US (occurrence: US)
  Receive Date: 20190118
  Receipt Date: 20190118
  Transmission Date: 20190417
  Serious: Yes (Life-Threatening)
  Sender: FDA-Public Use
  Company Number: None

PATIENT
  Age: 59 Year
  Sex: Female
  Weight: 78.93 kg

DRUGS (1)
  1. SYNALAR [Suspect]
     Active Substance: FLUOCINOLONE ACETONIDE

REACTIONS (2)
  - Rash generalised [None]
  - Swelling face [None]

NARRATIVE: CASE EVENT DATE: 20190116
